FAERS Safety Report 24910713 (Version 1)
Quarter: 2025Q1

REPORT INFORMATION
  Report Type: Spontaneous
  Country: US (occurrence: None)
  Receive Date: 20250130
  Receipt Date: 20250130
  Transmission Date: 20250409
  Serious: Yes (Life-Threatening, Hospitalization)
  Sender: FDA-CTU
  Company Number: None

PATIENT
  Age: 68 Year
  Sex: Male
  Weight: 72 kg

DRUGS (9)
  1. PEMIVIBART [Suspect]
     Active Substance: PEMIVIBART
     Dates: start: 20250129
  2. MYCOPHENOLIC ACID [Concomitant]
     Active Substance: MYCOPHENOLIC ACID
  3. PRAVASTATIN [Concomitant]
     Active Substance: PRAVASTATIN
  4. SULFAMETHOXAZOLE\TRIMETHOPRIM [Concomitant]
     Active Substance: SULFAMETHOXAZOLE\TRIMETHOPRIM
  5. PANTOPRAZOLE [Concomitant]
     Active Substance: PANTOPRAZOLE
  6. AMLODIPINE [Concomitant]
     Active Substance: AMLODIPINE BESYLATE
  7. HYZAAR [Concomitant]
     Active Substance: HYDROCHLOROTHIAZIDE\LOSARTAN POTASSIUM
  8. TAMSULOSIN [Concomitant]
     Active Substance: TAMSULOSIN
  9. LORAZEPAM [Concomitant]
     Active Substance: LORAZEPAM

REACTIONS (6)
  - Dyspnoea exertional [None]
  - Tachypnoea [None]
  - White blood cell count increased [None]
  - Lactic acidosis [None]
  - Tachycardia [None]
  - Urinary tract infection [None]

NARRATIVE: CASE EVENT DATE: 20250130
